FAERS Safety Report 9442310 (Version 1)
Quarter: 2013Q3

REPORT INFORMATION
  Report Type: Spontaneous
  Country: IT (occurrence: IT)
  Receive Date: 20130806
  Receipt Date: 20130806
  Transmission Date: 20140515
  Serious: Yes (Hospitalization)
  Sender: FDA-Public Use
  Company Number: IT-ASTRAZENECA-2013SE58372

PATIENT
  Age: 30155 Day
  Sex: Female

DRUGS (6)
  1. TENORMIN [Suspect]
     Indication: ARRHYTHMIA
     Route: 048
     Dates: start: 20130101, end: 20130329
  2. SIMVASTATIN [Concomitant]
     Route: 048
  3. LORAZEPAM [Concomitant]
     Route: 048
  4. FORZAAR (LOSARTAN+HCTZ) [Concomitant]
     Indication: HYPERTENSION
     Dosage: 100MG+25MG FILM COATED TABLETS
     Route: 048
  5. TIKLID (TICLOPIDINE) [Concomitant]
     Route: 048
  6. ORAL HYPOGLYCEMICS [Concomitant]
     Indication: TYPE 2 DIABETES MELLITUS

REACTIONS (2)
  - Adverse drug reaction [Recovered/Resolved]
  - Atrioventricular block second degree [Recovered/Resolved]
